FAERS Safety Report 4440581-5 (Version None)
Quarter: 2004Q3

REPORT INFORMATION
  Report Type: 
  Country: None (occurrence: None)
  Receive Date: 20040903
  Receipt Date: 20040825
  Transmission Date: 20050211
  Serious: Yes (Life-Threatening)
  Sender: FDA-Public Use
  Company Number: FR-ROCHE-378541

PATIENT
  Age: 64 Year
  Sex: Female

DRUGS (1)
  1. APRANAX [Suspect]
     Indication: DRUG USE FOR UNKNOWN INDICATION
     Route: 048
     Dates: start: 20040526, end: 20040529

REACTIONS (2)
  - GASTROINTESTINAL HAEMORRHAGE [None]
  - IRON DEFICIENCY ANAEMIA [None]
